FAERS Safety Report 7934458 (Version 16)
Quarter: 2013Q1

REPORT INFORMATION
  Report Type: Spontaneous
  Country: US (occurrence: US)
  Receive Date: 20110506
  Receipt Date: 20130211
  Transmission Date: 20140127
  Serious: Yes (Hospitalization, Other)
  Sender: FDA-Public Use
  Company Number: US-ASTRAZENECA-2011SE24659

PATIENT
  Age: 62 Year
  Sex: Female

DRUGS (64)
  1. NEXIUM [Suspect]
     Indication: GASTRIC ULCER
     Route: 048
  2. NEXIUM [Suspect]
     Indication: GASTRITIS
     Route: 048
  3. NEXIUM [Suspect]
     Indication: GASTRIC ULCER
     Route: 048
  4. NEXIUM [Suspect]
     Indication: GASTRITIS
     Route: 048
  5. NEXIUM [Suspect]
     Indication: GASTRIC ULCER
     Route: 048
  6. NEXIUM [Suspect]
     Indication: GASTRITIS
     Route: 048
  7. MUCINEX [Concomitant]
  8. MUCINEX [Concomitant]
  9. MUCINEX [Concomitant]
     Dosage: 1 AT NOON AND 1 AT EVENING
  10. LORATADINE [Concomitant]
  11. LORATADINE [Concomitant]
  12. ALENDRONATE [Concomitant]
     Indication: OSTEOPOROSIS PROPHYLAXIS
  13. EFFEXOR XR [Concomitant]
     Indication: DEPRESSION
  14. EFFEXOR XR [Concomitant]
     Indication: STRESS
  15. EFFEXOR XR [Concomitant]
     Indication: DEPRESSION
  16. EFFEXOR XR [Concomitant]
     Indication: STRESS
  17. ZOLPIDEM [Concomitant]
     Indication: SLEEP DISORDER
  18. DIAZEPAM [Concomitant]
     Indication: STRESS
  19. DIAZEPAM [Concomitant]
     Indication: MENOPAUSE
  20. FISH OIL [Concomitant]
     Indication: MEDICAL DIET
  21. CORAL CALCIUM [Concomitant]
     Dosage: 3/DAY
  22. OSTEO BI-FLEX [Concomitant]
     Indication: ARTHRALGIA
  23. COLON CLEAR FORMULA [Concomitant]
     Indication: MEDICAL DIET
     Dosage: 3/DAY
  24. TOTAL BODY PURIFIER [Concomitant]
     Dosage: DIETARY SUPPLEMENT - 30 DAYS ON AND 30 DAYS OFF
  25. NEILMED SINUS RINSE [Concomitant]
     Indication: CHRONIC SINUSITIS
     Dosage: 1-2 /DAY
  26. CO Q-10 [Concomitant]
     Indication: CARDIAC DISORDER
  27. ASPIRINE [Concomitant]
     Indication: CARDIAC DISORDER
  28. ZICAM [Concomitant]
     Indication: SEASONAL ALLERGY
  29. ALEVE [Concomitant]
     Indication: SPINAL PAIN
     Dosage: 220MG 2-4/DAY, APPROX 6/DAY
  30. ALEVE [Concomitant]
     Indication: NECK PAIN
     Dosage: 220MG 2-4/DAY, APPROX 6/DAY
  31. ALEVE [Concomitant]
     Indication: MUSCULOSKELETAL PAIN
     Dosage: 220MG 2-4/DAY, APPROX 6/DAY
  32. ALEVE [Concomitant]
     Indication: PAIN IN EXTREMITY
     Dosage: 220MG 2-4/DAY, APPROX 6/DAY
  33. ALEVE [Concomitant]
     Indication: PAIN IN EXTREMITY
     Dosage: 220MG 2-4/DAY, APPROX 6/DAY
  34. ALEVE [Concomitant]
     Indication: ARTHRITIS
     Dosage: 220MG 2-4/DAY, APPROX 6/DAY
  35. RESVERATROL [Concomitant]
  36. OMEGA 3 6 9 [Concomitant]
  37. DHA [Concomitant]
  38. PROVERA [Concomitant]
     Indication: MENOPAUSE
  39. VIVELLE DOT [Concomitant]
     Indication: MENOPAUSE
     Dosage: 0.1, TWO PER WEEK
  40. SIMVASTATIN [Concomitant]
     Indication: BLOOD CHOLESTEROL ABNORMAL
  41. PENNSAID [Concomitant]
     Dosage: 1.5 PERCENT, 40 DROPS/DAY AS NEEDED
     Route: 061
  42. LIDODERM [Concomitant]
     Indication: PAIN
     Dosage: 5 PERCENT
  43. LIDODERM [Concomitant]
     Indication: NECK PAIN
     Dosage: 5 PERCENT
  44. LIDODERM [Concomitant]
     Indication: MUSCULOSKELETAL PAIN
     Dosage: 5 PERCENT
  45. AMLODIPIN [Concomitant]
     Indication: HYPERTENSION
  46. AMLODIPIN [Concomitant]
     Indication: HYPERTENSION
  47. BENAZEPRIL [Concomitant]
     Indication: HYPERTENSION
  48. BENAZEPRIL [Concomitant]
     Indication: HYPERTENSION
  49. TRIAMCINOLONE ACETONIDE [Concomitant]
     Indication: HERPES ZOSTER
     Dosage: 0.1 PERCENT, TWO TO THREE TIMES A DAY
  50. CENTANNY [Concomitant]
     Indication: HERPES ZOSTER
     Dosage: 2 PERCENT, TWO/ DAY
  51. PERCOCET [Concomitant]
     Indication: SCOLIOSIS
     Dosage: GENERIC, 10 MG/325 MG, 6/DAY AS NEEDED
  52. PERCOCET [Concomitant]
     Indication: SPINAL OSTEOARTHRITIS
     Dosage: GENERIC, 10 MG/325 MG, 6/DAY AS NEEDED
  53. PERCOCET [Concomitant]
     Indication: SPINAL COLUMN STENOSIS
     Dosage: GENERIC, 10 MG/325 MG, 6/DAY AS NEEDED
  54. PERCOCET [Concomitant]
     Indication: SCOLIOSIS
     Dosage: GENERIC, 10 MG/325 MG, 8/DAY AS NEEDED
  55. PERCOCET [Concomitant]
     Indication: SPINAL OSTEOARTHRITIS
     Dosage: GENERIC, 10 MG/325 MG, 8/DAY AS NEEDED
  56. PERCOCET [Concomitant]
     Indication: SPINAL COLUMN STENOSIS
     Dosage: GENERIC, 10 MG/325 MG, 8/DAY AS NEEDED
  57. FIORICET [Concomitant]
     Indication: SCOLIOSIS
     Dosage: GENERIC
  58. FIORICET [Concomitant]
     Indication: SINUS DISORDER
     Dosage: GENERIC
  59. FIORICET [Concomitant]
     Indication: TENSION HEADACHE
     Dosage: GENERIC
  60. GABAPENTIN [Concomitant]
     Indication: NEURALGIA
  61. GABAPENTIN [Concomitant]
     Indication: SPINAL DISORDER
  62. PSEUDOEPHEDRINE HCL [Concomitant]
     Indication: SINUS CONGESTION
     Dosage: 2-4/DAY AS NEEDED
  63. PROBIOTICS [Concomitant]
     Dosage: 1/DAY AS NEEDED
  64. IRON SUPPLEMENT [Concomitant]
     Indication: BLOOD IRON DECREASED
     Dosage: 1/DAY AS NEEDED

REACTIONS (55)
  - Accident [Unknown]
  - Arthropathy [Unknown]
  - Hand fracture [Unknown]
  - Joint range of motion decreased [Unknown]
  - Joint dislocation [Unknown]
  - Arthropathy [Unknown]
  - Rotator cuff syndrome [Unknown]
  - Meniscus injury [Unknown]
  - Arthritis [Unknown]
  - Multiple allergies [Unknown]
  - Ankle fracture [Unknown]
  - Fall [Unknown]
  - Periarthritis [Unknown]
  - Speech disorder [Unknown]
  - Hypertension [Unknown]
  - Blood cholesterol increased [Unknown]
  - Impaired driving ability [Unknown]
  - Gait disturbance [Unknown]
  - Osteopenia [Unknown]
  - Pain in extremity [Unknown]
  - Herpes zoster [Unknown]
  - Vascular stenosis [Unknown]
  - Back injury [Unknown]
  - Asthenia [Unknown]
  - Pain [Unknown]
  - Nasopharyngitis [Unknown]
  - Dysstasia [Unknown]
  - Infection [Unknown]
  - Joint swelling [Unknown]
  - Spinal pain [Unknown]
  - Back pain [Unknown]
  - Tension headache [Unknown]
  - Neck pain [Unknown]
  - Oesophageal ulcer [Unknown]
  - Oesophagitis [Unknown]
  - Oesophageal disorder [Unknown]
  - Endoscopy gastrointestinal abnormal [Unknown]
  - Carpal tunnel syndrome [Unknown]
  - Chronic sinusitis [Unknown]
  - Scoliosis [Unknown]
  - Neuritis [Unknown]
  - Iron deficiency anaemia [Unknown]
  - Nerve injury [Unknown]
  - Nervousness [Unknown]
  - Hypoaesthesia [Unknown]
  - Spinal column stenosis [Unknown]
  - Spinal osteoarthritis [Unknown]
  - Stress [Unknown]
  - Orthopnoea [Unknown]
  - Malaise [Unknown]
  - Rash [Unknown]
  - Arthralgia [Unknown]
  - Depression [Unknown]
  - Local swelling [Unknown]
  - Intentional drug misuse [Unknown]
